FAERS Safety Report 17969635 (Version 1)
Quarter: 2020Q3

REPORT INFORMATION
  Report Type: Spontaneous
  Country: DE (occurrence: DE)
  Receive Date: 20200701
  Receipt Date: 20200701
  Transmission Date: 20201103
  Serious: Yes (Hospitalization)
  Sender: FDA-Public Use
  Company Number: DE-MYLANLABS-2020M1059313

PATIENT
  Age: 40 Year
  Sex: Female

DRUGS (3)
  1. PEGFILGRASTIM [Suspect]
     Active Substance: PEGFILGRASTIM
     Indication: PRODUCT USED FOR UNKNOWN INDICATION
     Dosage: CYCLE 1 AND CYCLE 2 15 DAYS AFTER 1ST APPLICATION
  2. CYCLOPHOSPHAMIDE. [Concomitant]
     Active Substance: CYCLOPHOSPHAMIDE
     Indication: BREAST CANCER
     Dosage: CYCLE 1 AND CYCLE 2 15 DAYS AFTER 1ST APPLICATION
  3. EPIRUBICIN [Concomitant]
     Active Substance: EPIRUBICIN
     Indication: BREAST CANCER
     Dosage: CYCLE 1 AND CYCLE 2 15 DAYS AFTER 1ST APPLICATION

REACTIONS (3)
  - Pyrexia [Unknown]
  - Myalgia [Recovered/Resolved]
  - Bone pain [Recovered/Resolved]
